FAERS Safety Report 15385093 (Version 1)
Quarter: 2018Q3

REPORT INFORMATION
  Report Type: Other
  Country: US (occurrence: US)
  Receive Date: 20180914
  Receipt Date: 20180914
  Transmission Date: 20181010
  Serious: No
  Sender: FDA-Public Use
  Company Number: US-ALEMBIC PHARMACUETICALS LIMITED-2018SCAL000672

PATIENT

DRUGS (1)
  1. FLUOXETINE HYDROCHLORIDE. [Suspect]
     Active Substance: FLUOXETINE HYDROCHLORIDE
     Indication: PRODUCT USED FOR UNKNOWN INDICATION
     Dosage: 40 MILLIGRAM

REACTIONS (8)
  - Gastric disorder [Unknown]
  - Pain [Unknown]
  - Vomiting [Unknown]
  - Product substitution issue [Unknown]
  - Dyspepsia [Unknown]
  - Nausea [Unknown]
  - Sleep disorder due to a general medical condition [Unknown]
  - Abdominal discomfort [Unknown]
